FAERS Safety Report 17069845 (Version 2)
Quarter: 2019Q4

REPORT INFORMATION
  Report Type: Spontaneous
  Country: JP (occurrence: JP)
  Receive Date: 20191125
  Receipt Date: 20191203
  Transmission Date: 20200122
  Serious: Yes (Death, Other)
  Sender: FDA-Public Use
  Company Number: JP-ROCHE-2478821

PATIENT
  Age: 74 Year
  Sex: Male

DRUGS (7)
  1. IRINOTECAN HYDROCHLORIDE TRIHYDRATE [IRINOTECAN HYDROCHLORIDE] [Concomitant]
     Active Substance: IRINOTECAN HYDROCHLORIDE
     Indication: NEUROENDOCRINE CARCINOMA
     Dosage: DOSAGE IS UNCERTAIN.
     Route: 041
  2. AVASTIN [Suspect]
     Active Substance: BEVACIZUMAB
     Indication: NEUROENDOCRINE CARCINOMA
     Dosage: DOSAGE IS UNCERTAIN.
     Route: 041
  3. LEVOFOLINATE CALCIUM [Concomitant]
     Active Substance: LEVOLEUCOVORIN CALCIUM
     Indication: NEUROENDOCRINE CARCINOMA
     Dosage: DOSAGE IS UNCERTAIN.
     Route: 041
  4. TEGAFUR,GIMERACIL AND OTERACIL POTASSIUM [Concomitant]
     Active Substance: GIMERACIL\OTERACIL\TEGAFUR
     Indication: NEUROENDOCRINE CARCINOMA
     Dosage: DOSAGE IS UNCERTAIN.
     Route: 048
  5. OXALIPLATIN. [Concomitant]
     Active Substance: OXALIPLATIN
     Indication: NEUROENDOCRINE CARCINOMA
     Dosage: DOSAGE IS UNCERTAIN.
     Route: 041
  6. FLUOROURACIL. [Concomitant]
     Active Substance: FLUOROURACIL
     Indication: NEUROENDOCRINE CARCINOMA
     Dosage: DOSAGE IS UNCERTAIN.
     Route: 040
  7. FLUOROURACIL. [Concomitant]
     Active Substance: FLUOROURACIL
     Dosage: DOSAGE IS UNCERTAIN.
     Route: 041

REACTIONS (5)
  - Sepsis [Fatal]
  - Intentional product use issue [Unknown]
  - Pneumonia aspiration [Fatal]
  - Metastases to spine [Unknown]
  - Off label use [Unknown]
